FAERS Safety Report 4422135-X (Version None)
Quarter: 2004Q3

REPORT INFORMATION
  Report Type: 
  Country: None (occurrence: None)
  Receive Date: 20040712
  Receipt Date: 20030812
  Transmission Date: 20050211
  Serious: Yes (Hospitalization)
  Sender: FDA-Public Use
  Company Number: TAP2003Q01071

PATIENT
  Age: 83 Year
  Sex: Female
  Weight: 50.8029 kg

DRUGS (4)
  1. PREVACID [Suspect]
     Indication: CHOKING
     Dosage: 30 MG, 1 IN 1 D, ORAL,
     Route: 048
     Dates: start: 19950101, end: 19980910
  2. PRAVACHOL [Concomitant]
  3. LOPRESSOR [Concomitant]
  4. ASPIRIN [Concomitant]

REACTIONS (4)
  - CORONARY ARTERY DISEASE [None]
  - DIARRHOEA [None]
  - DRUG INEFFECTIVE FOR UNAPPROVED INDICATION [None]
  - WEIGHT DECREASED [None]
